FAERS Safety Report 21655580 (Version 1)
Quarter: 2022Q4

REPORT INFORMATION
  Report Type: Spontaneous
  Country: RS (occurrence: RS)
  Receive Date: 20221129
  Receipt Date: 20221129
  Transmission Date: 20230112
  Serious: Yes (Hospitalization)
  Sender: FDA-Public Use
  Company Number: RS-ALKEM LABORATORIES LIMITED-RS-ALKEM-2022-07845

PATIENT
  Age: 26 Year
  Sex: Male

DRUGS (1)
  1. OLANZAPINE [Suspect]
     Active Substance: OLANZAPINE
     Indication: Product used for unknown indication
     Dosage: ABOUT 150 MILLIGRAM
     Route: 065

REACTIONS (4)
  - Toxicity to various agents [Unknown]
  - Tachycardia [Recovered/Resolved]
  - Somnolence [Recovered/Resolved]
  - Overdose [Unknown]
